FAERS Safety Report 5219542-4 (Version None)
Quarter: 2007Q1

REPORT INFORMATION
  Report Type: 
  Country: None (occurrence: None)
  Receive Date: 20070124
  Receipt Date: 20070124
  Transmission Date: 20070707
  Serious: No
  Sender: FDA-Public Use
  Company Number: None

PATIENT
  Age: 63 Year
  Sex: Male
  Weight: 59.8748 kg

DRUGS (4)
  1. LISINOPRIL [Suspect]
     Indication: BLOOD PRESSURE
     Dosage: 10 MG QD
     Dates: start: 20050501
  2. SIMVASTATIN [Concomitant]
  3. HYDROCHLOROTHIAZIDE [Concomitant]
  4. METOPROLOL [Concomitant]

REACTIONS (1)
  - RENAL FAILURE [None]
